FAERS Safety Report 4287965-6 (Version None)
Quarter: 2004Q1

REPORT INFORMATION
  Report Type: 
  Country: None (occurrence: None)
  Receive Date: 20040209
  Receipt Date: 20031107
  Transmission Date: 20041129
  Serious: No
  Sender: FDA-Public Use
  Company Number: US-GLAXOSMITHKLINE-A0438820A

PATIENT
  Age: 34 Year
  Sex: Female

DRUGS (1)
  1. PAXIL [Suspect]
     Indication: ANXIETY
     Dosage: 12.5MG PER DAY
     Route: 048

REACTIONS (3)
  - DECREASED APPETITE [None]
  - LIBIDO DECREASED [None]
  - WEIGHT DECREASED [None]
